FAERS Safety Report 18642556 (Version 1)
Quarter: 2020Q4

REPORT INFORMATION
  Report Type: Spontaneous
  Country: US (occurrence: US)
  Receive Date: 20201218
  Receipt Date: 20201218
  Transmission Date: 20210114
  Serious: Yes (Hospitalization)
  Sender: FDA-Public Use
  Company Number: None

PATIENT
  Age: 89 Year
  Sex: Male
  Weight: 69 kg

DRUGS (1)
  1. HYDROCHLOROTHIAZIDE (HYDROCHLOROTTHIAZIDE 25MG TAB) [Suspect]
     Active Substance: HYDROCHLOROTHIAZIDE
     Indication: HYPERTENSION
     Dates: end: 20200811

REACTIONS (6)
  - Blood sodium decreased [None]
  - Cough [None]
  - Asthenia [None]
  - Gait inability [None]
  - Fear of falling [None]
  - Dyspnoea [None]

NARRATIVE: CASE EVENT DATE: 20200810
